FAERS Safety Report 6445726-3 (Version None)
Quarter: 2009Q4

REPORT INFORMATION
  Report Type: 
  Country: None (occurrence: None)
  Receive Date: 20091118
  Receipt Date: 20091118
  Transmission Date: 20100525
  Serious: Yes (Life-Threatening, Hospitalization)
  Sender: FDA-Public Use
  Company Number: None

PATIENT
  Age: 57 Year
  Sex: Female
  Weight: 67.1324 kg

DRUGS (1)
  1. -AMIODARONE- AMOODARONE HYDROXIDE 200 MG [Suspect]
     Indication: ATRIAL FIBRILLATION
     Dosage: 200 MG DAILY PO
     Route: 048
     Dates: start: 20071101, end: 20081031

REACTIONS (9)
  - ACTIVITIES OF DAILY LIVING IMPAIRED [None]
  - APATHY [None]
  - CYANOSIS [None]
  - DEPRESSION [None]
  - FATIGUE [None]
  - MENTAL IMPAIRMENT [None]
  - PNEUMONITIS [None]
  - PULMONARY FIBROSIS [None]
  - WEIGHT DECREASED [None]
